FAERS Safety Report 9500143 (Version 6)
Quarter: 2014Q1

REPORT INFORMATION
  Report Type: Report from Study
  Country: CA (occurrence: CA)
  Receive Date: 20130905
  Receipt Date: 20140212
  Transmission Date: 20141002
  Serious: Yes (Death, Other)
  Sender: FDA-Public Use
  Company Number: PHHY2013CA032808

PATIENT
  Age: 60 Year
  Sex: Male

DRUGS (3)
  1. GLIVEC [Suspect]
     Indication: CHRONIC MYELOID LEUKAEMIA
     Dosage: 400 MG, QD
     Route: 048
     Dates: start: 20060508, end: 201112
  2. GLIVEC [Suspect]
     Dosage: 400 MG, QD
     Route: 048
  3. TASIGNA [Suspect]
     Dosage: UNK UKN, UNK
     Dates: start: 201112

REACTIONS (24)
  - Lung neoplasm malignant [Fatal]
  - Second primary malignancy [Fatal]
  - Lymphoma [Unknown]
  - Nephrolithiasis [Unknown]
  - Cholelithiasis [Unknown]
  - Pain [Unknown]
  - Lymphadenopathy [Unknown]
  - Dyspnoea [Unknown]
  - Pulmonary fibrosis [Unknown]
  - Red blood cell sedimentation rate increased [Unknown]
  - Spinal pain [Unknown]
  - Back pain [Unknown]
  - Eating disorder [Unknown]
  - Dry skin [Unknown]
  - Fatigue [Unknown]
  - Abdominal pain upper [Unknown]
  - Decreased appetite [Unknown]
  - Weight decreased [Unknown]
  - Nausea [Unknown]
  - Malaise [Unknown]
  - Pyrexia [Recovered/Resolved]
  - Blood pressure increased [Unknown]
  - Heart rate increased [Unknown]
  - White blood cell count decreased [Unknown]
